FAERS Safety Report 8455667-8 (Version None)
Quarter: 2012Q2

REPORT INFORMATION
  Report Type: 
  Country: None (occurrence: None)
  Receive Date: 20120614
  Receipt Date: 20120605
  Transmission Date: 20120825
  Serious: Yes (Other)
  Sender: FDA-Public Use
  Company Number: DKLU1081695

PATIENT
  Age: 24 Year
  Sex: Male

DRUGS (2)
  1. ONFI [Suspect]
     Indication: LENNOX-GASTAUT SYNDROME
  2. RUFINAMIDE (RUFINAMIDE) [Concomitant]

REACTIONS (1)
  - URINARY RETENTION [None]
